FAERS Safety Report 11212888 (Version 1)
Quarter: 2015Q2

REPORT INFORMATION
  Report Type: Spontaneous
  Country: US (occurrence: US)
  Receive Date: 20150623
  Receipt Date: 20150623
  Transmission Date: 20150821
  Serious: No
  Sender: FDA-Public Use
  Company Number: US-ASTRAZENECA-2015SE59171

PATIENT
  Age: 57 Year
  Sex: Female
  Weight: 55.3 kg

DRUGS (2)
  1. ESTROGEL [Concomitant]
     Active Substance: ESTRADIOL
     Indication: HORMONE LEVEL ABNORMAL
     Dosage: DAILY
     Route: 061
     Dates: start: 201408
  2. ESOMEPRAZOLE MAGNESIUM. [Suspect]
     Active Substance: ESOMEPRAZOLE MAGNESIUM
     Indication: BARRETT^S OESOPHAGUS
     Route: 048
     Dates: start: 201505

REACTIONS (8)
  - Product use issue [Unknown]
  - Off label use [Unknown]
  - Anorectal discomfort [Unknown]
  - Defaecation urgency [Unknown]
  - Proctalgia [Unknown]
  - Burning sensation [Unknown]
  - Off label use [Unknown]
  - Burning sensation [Unknown]

NARRATIVE: CASE EVENT DATE: 2015
